FAERS Safety Report 4793517-1 (Version None)
Quarter: 2005Q4

REPORT INFORMATION
  Report Type: 
  Country: None (occurrence: None)
  Receive Date: 20051006
  Receipt Date: 20041123
  Transmission Date: 20060501
  Serious: Yes (Other)
  Sender: FDA-Public Use
  Company Number: 15512

PATIENT
  Age: 51 Year
  Sex: Female

DRUGS (8)
  1. DOXORUBICIN HCL [Suspect]
     Indication: BREAST CANCER
     Dosage: 88 MG IV 20-30 MIN.
     Route: 042
     Dates: start: 20041123
  2. CYTOXAN [Concomitant]
  3. TAXOTERE [Concomitant]
  4. COMPAZINE [Concomitant]
  5. ATIVAN [Concomitant]
  6. ZOLOFT [Concomitant]
  7. DARVOCET [Concomitant]
  8. TYLENOL (CAPLET) [Concomitant]

REACTIONS (1)
  - RASH [None]
